FAERS Safety Report 6087783-2 (Version None)
Quarter: 2009Q1

REPORT INFORMATION
  Report Type: 
  Country: None (occurrence: None)
  Receive Date: 20090223
  Receipt Date: 20090211
  Transmission Date: 20090719
  Serious: Yes (Life-Threatening)
  Sender: FDA-Public Use
  Company Number: AU-WYE-G03103609

PATIENT
  Age: 75 Year
  Sex: Female

DRUGS (1)
  1. PRISTIQ [Suspect]
     Dates: start: 20090203, end: 20090209

REACTIONS (6)
  - CHILLS [None]
  - DRUG WITHDRAWAL SYNDROME [None]
  - MUSCLE SPASMS [None]
  - NAUSEA [None]
  - PANIC ATTACK [None]
  - PHARYNGEAL OEDEMA [None]
